FAERS Safety Report 9483451 (Version 1)
Quarter: 2013Q3

REPORT INFORMATION
  Report Type: Spontaneous
  Country: CA (occurrence: CA)
  Receive Date: 20130828
  Receipt Date: 20130828
  Transmission Date: 20140515
  Serious: Yes (Life-Threatening, Other)
  Sender: FDA-Public Use
  Company Number: CA-AMGEN-KDL268597

PATIENT
  Age: 54 Year
  Sex: Female
  Weight: 127.1 kg

DRUGS (7)
  1. ENBREL [Suspect]
     Indication: RHEUMATOID ARTHRITIS
     Dosage: 50 MG, QWK
     Route: 058
     Dates: start: 20080227
  2. OMEPRAZOLE [Concomitant]
     Dosage: UNK UNK, UNK
  3. PREDNISONE [Concomitant]
     Dosage: UNK UNK, UNK
  4. CETIRIZINE [Concomitant]
     Dosage: UNK UNK, UNK
  5. LEFLUNOMIDE [Concomitant]
     Dosage: UNK UNK, UNK
  6. FUROSEMIDE [Concomitant]
     Dosage: UNK UNK, UNK
  7. HYDROMORPHONE [Concomitant]
     Dosage: 2 MG, UNK

REACTIONS (2)
  - Dyspnoea [Unknown]
  - Palpitations [Unknown]
